FAERS Safety Report 19508470 (Version 2)
Quarter: 2022Q2

REPORT INFORMATION
  Report Type: Spontaneous
  Country: DE (occurrence: DE)
  Receive Date: 20210708
  Receipt Date: 20220530
  Transmission Date: 20220721
  Serious: Yes (Hospitalization)
  Sender: FDA-Public Use
  Company Number: None

PATIENT
  Age: 48 Year
  Sex: Male
  Weight: 130 kg

DRUGS (7)
  1. VENLAFAXINE [Suspect]
     Active Substance: VENLAFAXINE HYDROCHLORIDE
     Indication: Product used for unknown indication
     Dosage: 1-1-0-0, RETARD-CAPSULE
     Route: 048
  2. RISPERIDONE [Suspect]
     Active Substance: RISPERIDONE
     Indication: Product used for unknown indication
     Dosage: 0-0-0-1
     Route: 048
  3. QUETIAPINE [Suspect]
     Active Substance: QUETIAPINE
     Indication: Product used for unknown indication
     Dosage: 0-0-0-2
     Route: 048
  4. QUETIAPINE [Suspect]
     Active Substance: QUETIAPINE
     Dosage: 1-0-0-0
     Route: 048
  5. AMLODIPINE BESYLATE\HYDROCHLOROTHIAZIDE\OLMESARTAN MEDOXOMIL [Concomitant]
     Active Substance: AMLODIPINE BESYLATE\HYDROCHLOROTHIAZIDE\OLMESARTAN MEDOXOMIL
     Indication: Product used for unknown indication
     Dosage: 40|10|25 MG, 1-0-0-0
     Route: 048
  6. LEVOTHYROXINE-NATRIUM [Concomitant]
     Indication: Product used for unknown indication
     Dosage: 1-0-0-0
     Route: 048
  7. DOXAZOSIN [Concomitant]
     Active Substance: DOXAZOSIN MESYLATE
     Indication: Product used for unknown indication
     Dosage: 0-0-0-1
     Route: 048

REACTIONS (3)
  - Depressed mood [Unknown]
  - Psychotic symptom [Unknown]
  - Depression [Unknown]
